FAERS Safety Report 24705207 (Version 2)
Quarter: 2024Q4

REPORT INFORMATION
  Report Type: Spontaneous
  Country: JP (occurrence: JP)
  Receive Date: 20241206
  Receipt Date: 20241217
  Transmission Date: 20250114
  Serious: Yes (Other)
  Sender: BRISTOL-MYERS SQUIBB COMPANY
  Company Number: JP-TAIHO-2024-010481

PATIENT
  Age: 65 Year
  Sex: Male

DRUGS (2)
  1. ABRAXANE [Suspect]
     Active Substance: PACLITAXEL
     Indication: Pancreatic carcinoma
     Dosage: NI, CYCLE 13
     Route: 042
     Dates: start: 20231107
  2. GEMCITABINE [Concomitant]
     Active Substance: GEMCITABINE
     Indication: Pancreatic carcinoma
     Dosage: NI, CYCLE 13
     Route: 051
     Dates: start: 20231107

REACTIONS (2)
  - Renal impairment [Recovered/Resolved]
  - Neuropathy peripheral [Recovering/Resolving]

NARRATIVE: CASE EVENT DATE: 20241001
